FAERS Safety Report 6804496-7 (Version None)
Quarter: 2010Q2

REPORT INFORMATION
  Report Type: 
  Country: None (occurrence: None)
  Receive Date: 20100628
  Receipt Date: 20070406
  Transmission Date: 20101027
  Serious: No
  Sender: FDA-Public Use
  Company Number: US-PFIZER INC-2007027752

PATIENT
  Age: 18 Year
  Sex: Male

DRUGS (2)
  1. GEODON [Suspect]
     Indication: MANIA
  2. LAMICTAL [Concomitant]

REACTIONS (1)
  - EXTRAPYRAMIDAL DISORDER [None]
